FAERS Safety Report 4993909-1 (Version None)
Quarter: 2006Q2

REPORT INFORMATION
  Report Type: 
  Country: None (occurrence: None)
  Receive Date: 20060503
  Receipt Date: 20060503
  Transmission Date: 20061013
  Serious: Yes (Hospitalization)
  Sender: FDA-Public Use
  Company Number: None

PATIENT
  Age: 69 Year
  Sex: Female
  Weight: 63.28 kg

DRUGS (10)
  1. COUMADIN [Suspect]
     Indication: DEEP VEIN THROMBOSIS
     Dosage: 5MG DAILY PO
     Route: 048
     Dates: start: 20060426, end: 20060501
  2. BACTRIM DS [Suspect]
     Indication: URINARY TRACT INFECTION
     Dosage: 160/800 DS BID PO
     Route: 048
     Dates: start: 20060430
  3. LORTAB [Concomitant]
  4. CHLORPROMAZINE [Concomitant]
  5. BOOST [Concomitant]
  6. K-DUR 10 [Concomitant]
  7. MEGACE [Concomitant]
  8. PROTONIX [Concomitant]
  9. SLO-MAG [Concomitant]
  10. IMODIUM [Concomitant]

REACTIONS (3)
  - DEEP VEIN THROMBOSIS [None]
  - FEMORAL NECK FRACTURE [None]
  - INTERNATIONAL NORMALISED RATIO INCREASED [None]
